FAERS Safety Report 7568659-8 (Version None)
Quarter: 2011Q2

REPORT INFORMATION
  Report Type: 
  Country: None (occurrence: None)
  Receive Date: 20110623
  Receipt Date: 20110615
  Transmission Date: 20111010
  Serious: Yes (Other)
  Sender: FDA-Public Use
  Company Number: US-JNJFOC-20110607693

PATIENT
  Sex: Female

DRUGS (4)
  1. DURAGESIC-100 [Suspect]
     Indication: PAIN
     Route: 062
  2. UNKNOWN MEDICATION [Concomitant]
     Route: 065
  3. DURAGESIC-100 [Suspect]
     Route: 062
     Dates: start: 20040101
  4. FENTANYL CITRATE [Suspect]
     Indication: PAIN
     Dosage: 50 MG+12.5 MG
     Route: 062

REACTIONS (2)
  - WITHDRAWAL SYNDROME [None]
  - HEARING IMPAIRED [None]
